FAERS Safety Report 7834142-5 (Version None)
Quarter: 2011Q4

REPORT INFORMATION
  Report Type: 
  Country: None (occurrence: None)
  Receive Date: 20111024
  Receipt Date: 20111012
  Transmission Date: 20120403
  Serious: No
  Sender: FDA-Public Use
  Company Number: PHHY2010JP63402

PATIENT
  Sex: Male

DRUGS (19)
  1. ISOSORBIDE DINITRATE [Concomitant]
     Dosage: 1 DF, DAILY
     Route: 062
     Dates: start: 20080424
  2. TALION [Concomitant]
     Dosage: 20 MG, DAILY
     Route: 048
     Dates: start: 20090309, end: 20100225
  3. KETOPROFEN [Concomitant]
     Dosage: 1 DF, DAILY
     Route: 061
     Dates: start: 20100619
  4. ISODINE [Concomitant]
     Indication: PROPHYLAXIS
     Dosage: UNK UKN, UNK
     Route: 049
     Dates: start: 20091016
  5. TASIGNA [Suspect]
     Indication: CHRONIC MYELOID LEUKAEMIA
     Dosage: 200 MG, DAILY
     Route: 048
     Dates: start: 20100118
  6. ENALAPRIL MALEATE [Concomitant]
     Dosage: 5 MG, DAILY
     Route: 048
     Dates: start: 20080428
  7. AMLODIPINE [Concomitant]
     Dosage: 5 MG, DAILY
     Route: 048
     Dates: start: 20080428
  8. NERISONA [Concomitant]
     Dosage: UNK UKN, UNK
     Route: 061
     Dates: start: 20100129, end: 20100205
  9. CELESTAMINE TAB [Concomitant]
     Dosage: 1 DF, DAILY
     Route: 048
     Dates: start: 20100226
  10. ASPIRIN [Concomitant]
     Dosage: 100 MG, DAILY
     Route: 048
     Dates: start: 20080424
  11. HEPARIN [Concomitant]
     Dosage: UNK UKN, UNK
     Route: 061
     Dates: start: 20100129, end: 20100205
  12. ZADITEN [Concomitant]
     Dosage: UNK UKN, UNK
     Dates: start: 20100119, end: 20100119
  13. ALLOPURINOL [Concomitant]
     Indication: PROPHYLAXIS
     Dosage: 100 MG, DAILY
     Route: 048
     Dates: start: 20100121, end: 20100121
  14. ALMETA [Concomitant]
     Dosage: UNK UKN, UNK
     Route: 061
     Dates: start: 20100114, end: 20100205
  15. FULMETA [Concomitant]
     Dosage: UNK UKN, UNK
     Route: 061
     Dates: start: 20090925, end: 20100226
  16. RINDERON-VG [Concomitant]
     Dosage: UNK UKN, UNK
     Route: 061
     Dates: start: 20100119, end: 20100119
  17. DOXAZOSIN MESYLATE [Concomitant]
     Dosage: 2 MG, DAILY
     Route: 048
     Dates: start: 20080424
  18. FAMOTIDINE [Concomitant]
     Indication: PROPHYLAXIS
     Dosage: 20 MG, DAILY
     Route: 048
     Dates: start: 20100226
  19. CLOBETASOL PROPIONATE [Concomitant]
     Dosage: UNK UKN, UNK
     Route: 061
     Dates: start: 20100119

REACTIONS (2)
  - BLOOD GLUCOSE INCREASED [None]
  - RASH ERYTHEMATOUS [None]
